FAERS Safety Report 5139614-2 (Version None)
Quarter: 2006Q4

REPORT INFORMATION
  Report Type: 
  Country: None (occurrence: None)
  Receive Date: 20061024
  Receipt Date: 20061011
  Transmission Date: 20070319
  Serious: Yes (Other)
  Sender: FDA-Public Use
  Company Number: 111641ISR

PATIENT
  Age: 42 Year
  Sex: Female

DRUGS (3)
  1. COPAXONE [Suspect]
     Indication: MULTIPLE SCLEROSIS
     Dosage: (20 MG, ONCE A DAY), SUBCUTANEOUS
     Route: 058
     Dates: start: 20050216
  2. MEDICINAL MARIHUANA [Concomitant]
  3. GABAPENTIN [Concomitant]

REACTIONS (1)
  - VULVAR DYSPLASIA [None]
